FAERS Safety Report 9680664 (Version 1)
Quarter: 2013Q4

REPORT INFORMATION
  Report Type: Spontaneous
  Country: BR (occurrence: BR)
  Receive Date: 20131111
  Receipt Date: 20131111
  Transmission Date: 20140711
  Serious: Yes (Other)
  Sender: FDA-Public Use
  Company Number: BR-JNJFOC-20131101526

PATIENT
  Age: 71 Year
  Sex: Male
  Weight: 69 kg

DRUGS (6)
  1. ZYTIGA [Suspect]
     Indication: METASTASES TO BONE
     Route: 065
     Dates: start: 201309, end: 20131030
  2. PREDNISONE [Concomitant]
     Indication: METASTASES TO BONE
     Route: 065
     Dates: end: 20131030
  3. RYTMONORMA [Concomitant]
     Indication: ARRHYTHMIA
     Route: 065
     Dates: start: 2009
  4. DORFLEX [Concomitant]
     Indication: BACK PAIN
     Dosage: 1 OR 2 TABLETS PER DAY
     Route: 065
  5. TYLEX [Concomitant]
     Indication: BACK PAIN
     Route: 065
  6. NIMESULIDE [Concomitant]
     Indication: BACK PAIN
     Route: 065

REACTIONS (5)
  - Ophthalmoplegia [Not Recovered/Not Resolved]
  - Hypoaesthesia oral [Not Recovered/Not Resolved]
  - Dizziness [Not Recovered/Not Resolved]
  - Malaise [Not Recovered/Not Resolved]
  - Malaise [Not Recovered/Not Resolved]
